FAERS Safety Report 7709155-4 (Version None)
Quarter: 2011Q3

REPORT INFORMATION
  Report Type: 
  Country: None (occurrence: None)
  Receive Date: 20110825
  Receipt Date: 20110816
  Transmission Date: 20111222
  Serious: Yes (Other)
  Sender: FDA-Public Use
  Company Number: PHHY2011US60088

PATIENT
  Sex: Female

DRUGS (1)
  1. GILENYA [Suspect]
     Dosage: 0.5 MG, QD
     Route: 048

REACTIONS (5)
  - MYCOBACTERIAL INFECTION [None]
  - ACID FAST BACILLI INFECTION [None]
  - CUTANEOUS TUBERCULOSIS [None]
  - PAPULE [None]
  - INFLAMMATION [None]
